FAERS Safety Report 8223254-2 (Version None)
Quarter: 2012Q1

REPORT INFORMATION
  Report Type: 
  Country: None (occurrence: None)
  Receive Date: 20120321
  Receipt Date: 20120312
  Transmission Date: 20120608
  Serious: Yes (Other)
  Sender: FDA-Public Use
  Company Number: NL-ROCHE-1048537

PATIENT

DRUGS (2)
  1. VIRACEPT [Suspect]
     Indication: RECTAL CANCER
  2. XELODA [Suspect]
     Indication: RECTAL CANCER

REACTIONS (4)
  - DIARRHOEA [None]
  - TRANSAMINASES INCREASED [None]
  - CHOLANGITIS [None]
  - POSTOPERATIVE WOUND COMPLICATION [None]
